FAERS Safety Report 7296234-1 (Version None)
Quarter: 2011Q1

REPORT INFORMATION
  Report Type: 
  Country: None (occurrence: None)
  Receive Date: 20110216
  Receipt Date: 20110209
  Transmission Date: 20110831
  Serious: Yes (Death)
  Sender: FDA-Public Use
  Company Number: JP-ELI_LILLY_AND_COMPANY-JP201102003342

PATIENT

DRUGS (2)
  1. GEMZAR [Suspect]
     Indication: NON-SMALL CELL LUNG CANCER
     Dosage: 1000 MG/M2, OTHER
     Route: 042
  2. VINORELBINE [Concomitant]
     Indication: NON-SMALL CELL LUNG CANCER
     Dosage: 25 MG/M2, OTHER
     Route: 042

REACTIONS (1)
  - SHOCK [None]
